FAERS Safety Report 8486946-6 (Version None)
Quarter: 2012Q3

REPORT INFORMATION
  Report Type: 
  Country: None (occurrence: None)
  Receive Date: 20120704
  Receipt Date: 20120625
  Transmission Date: 20120928
  Serious: No
  Sender: FDA-Public Use
  Company Number: US-TEVA-345049USA

PATIENT
  Sex: Female

DRUGS (3)
  1. BREVA [Concomitant]
  2. PROAIR HFA [Suspect]
     Indication: BRONCHITIS
     Dosage: INHALED 2 TO 3 TIMES DAILY AS NEEDED
     Dates: start: 20120429
  3. PROAIR HFA [Suspect]
     Indication: EMPHYSEMA

REACTIONS (2)
  - DEVICE MALFUNCTION [None]
  - DRUG EFFECT DECREASED [None]
